FAERS Safety Report 10182549 (Version 1)
Quarter: 2014Q2

REPORT INFORMATION
  Report Type: Spontaneous
  Country: US (occurrence: None)
  Receive Date: 20140519
  Receipt Date: 20140519
  Transmission Date: 20141212
  Serious: Yes (Life-Threatening, Hospitalization)
  Sender: FDA-Public Use
  Company Number: None

PATIENT
  Age: 49 Year
  Sex: Female
  Weight: 58.06 kg

DRUGS (2)
  1. VIORELE [Suspect]
     Indication: CONTRACEPTION
     Dosage: 1 PILL DAILY ONCE DAILY TAKEN BY MOUTH
     Route: 048
  2. VIORELE [Suspect]
     Indication: HORMONE THERAPY
     Dosage: 1 PILL DAILY ONCE DAILY TAKEN BY MOUTH
     Route: 048

REACTIONS (4)
  - Headache [None]
  - Syncope [None]
  - Pulmonary embolism [None]
  - Pulmonary infarction [None]
